FAERS Safety Report 18421162 (Version 1)
Quarter: 2020Q4

REPORT INFORMATION
  Report Type: Spontaneous
  Country: US (occurrence: US)
  Receive Date: 20201023
  Receipt Date: 20201023
  Transmission Date: 20210114
  Serious: No
  Sender: FDA-Public Use
  Company Number: US-SA-2020SA294660

PATIENT

DRUGS (5)
  1. MULTAQ [Suspect]
     Active Substance: DRONEDARONE
     Indication: ATRIAL FIBRILLATION
     Dosage: DRUG STRUCTURE DOSAGE : 400 MG  DRUG INTERVAL DOSAGE : BID  DRUG TREATMENT DURATION:  10 YEARS
     Route: 065
     Dates: start: 2010
  2. ATENOLOL. [Concomitant]
     Active Substance: ATENOLOL
     Dosage: 50 MG, BID
     Route: 065
  3. MULTAQ [Suspect]
     Active Substance: DRONEDARONE
     Dosage: CHANGED HIS DOSING TIMES OF  MULTAQ TO 14:30 AND 23:30 WITH THREE SALT-FREE RITZ CRACKERS
     Route: 065
     Dates: start: 2014
  4. ASPIRIN [ACETYLSALICYLIC ACID] [Concomitant]
     Active Substance: ASPIRIN
     Dosage: 81 MG
     Route: 065
  5. XARELTO [Concomitant]
     Active Substance: RIVAROXABAN
     Dosage: 20 MG AT 20:00
     Route: 065

REACTIONS (4)
  - Sleep deficit [Not Recovered/Not Resolved]
  - Fatigue [Not Recovered/Not Resolved]
  - Atrial tachycardia [Not Recovered/Not Resolved]
  - Product storage error [Unknown]
